FAERS Safety Report 9662239 (Version 2)
Quarter: 2013Q4

REPORT INFORMATION
  Report Type: Spontaneous
  Country: US (occurrence: US)
  Receive Date: 20131031
  Receipt Date: 20131031
  Transmission Date: 20140711
  Serious: No
  Sender: FDA-Public Use
  Company Number: US-PURDUE-USA-2010-0047832

PATIENT
  Sex: Female

DRUGS (6)
  1. OXYCONTIN (NDA 22-272) [Suspect]
     Indication: ARTHRALGIA
     Dosage: 80 MG, BID
     Dates: start: 20100821, end: 20110114
  2. OXYCONTIN (NDA 22-272) [Suspect]
     Indication: JOINT ANKYLOSIS
  3. OXYCONTIN (NDA 22-272) [Suspect]
     Indication: SPONDYLITIS
  4. OXYCONTIN (NDA 22-272) [Suspect]
     Indication: RHEUMATOID ARTHRITIS
  5. DEXLANSOPRAZOLE [Concomitant]
     Indication: GASTROOESOPHAGEAL REFLUX DISEASE
     Dosage: 60 MG, DAILY
  6. ALPRAZOLAM ACTAVIS [Concomitant]
     Indication: ANXIETY
     Dosage: 1 MG, BID

REACTIONS (10)
  - Drug withdrawal syndrome [Not Recovered/Not Resolved]
  - Panic attack [Recovered/Resolved]
  - Pain [Recovered/Resolved]
  - Therapy change [Unknown]
  - Drug effect decreased [Unknown]
  - Nausea [Not Recovered/Not Resolved]
  - Vomiting [Recovered/Resolved]
  - Diarrhoea [Recovered/Resolved]
  - Drug ineffective [Recovered/Resolved]
  - Anxiety [Recovered/Resolved]
